FAERS Safety Report 13742665 (Version 1)
Quarter: 2017Q3

REPORT INFORMATION
  Report Type: Spontaneous
  Country: JP (occurrence: JP)
  Receive Date: 20170711
  Receipt Date: 20170711
  Transmission Date: 20171127
  Serious: Yes (Other)
  Sender: FDA-Public Use
  Company Number: JP-SA-2017SA122534

PATIENT

DRUGS (2)
  1. SOLOSTAR [Concomitant]
     Active Substance: DEVICE
     Route: 058
  2. LANTUS SOLOSTAR [Suspect]
     Active Substance: INSULIN GLARGINE
     Route: 058

REACTIONS (1)
  - Renal impairment [Unknown]
